FAERS Safety Report 9334375 (Version 1)
Quarter: 2013Q2

REPORT INFORMATION
  Report Type: Spontaneous
  Country: US (occurrence: US)
  Receive Date: 20130606
  Receipt Date: 20130606
  Transmission Date: 20140414
  Serious: No
  Sender: FDA-Public Use
  Company Number: US-AMGEN-USASP2013031554

PATIENT
  Sex: 0

DRUGS (6)
  1. PROLIA [Suspect]
     Indication: OSTEOPOROSIS POSTMENOPAUSAL
     Dosage: UNK
     Dates: start: 20130425
  2. FISH OIL [Concomitant]
  3. GLUCOSAMINE [Concomitant]
  4. TOPROL [Concomitant]
  5. CALCIUM WITH VITAMIN D             /00944201/ [Concomitant]
  6. MULTIVITAMIN                       /00097801/ [Concomitant]

REACTIONS (5)
  - Limb discomfort [Not Recovered/Not Resolved]
  - Gait disturbance [Not Recovered/Not Resolved]
  - Dental discomfort [Not Recovered/Not Resolved]
  - Plantar fasciitis [Recovering/Resolving]
  - Pain in extremity [Not Recovered/Not Resolved]
